FAERS Safety Report 5126976-5 (Version None)
Quarter: 2006Q4

REPORT INFORMATION
  Report Type: 
  Country: None (occurrence: None)
  Receive Date: 20061013
  Receipt Date: 20051229
  Transmission Date: 20070319
  Serious: Yes (Death)
  Sender: FDA-Public Use
  Company Number: US-AVENTIS-200610134US

PATIENT
  Sex: Male

DRUGS (9)
  1. LANTUS [Suspect]
     Indication: DIABETES MELLITUS NON-INSULIN-DEPENDENT
     Dates: start: 20050601, end: 20060301
  2. POTASSIUM CHLORIDE [Concomitant]
     Dosage: DOSE: UNK
  3. COUMADIN [Concomitant]
     Dosage: DOSE: UNK
  4. LISINOPRIL [Concomitant]
     Dosage: DOSE: UNK
  5. RANITIDINE [Concomitant]
     Dosage: DOSE: UNK
  6. NIFEDIPINE [Concomitant]
     Dosage: DOSE: UNK
  7. DARVOCET [Concomitant]
     Dosage: DOSE: UNK
  8. FUROSEMIDE [Concomitant]
     Dosage: DOSE: UNK
  9. SIMVASTATIN [Concomitant]
     Dosage: DOSE: UNK

REACTIONS (2)
  - BLOOD GLUCOSE FLUCTUATION [None]
  - DEATH [None]
